FAERS Safety Report 9112173 (Version 1)
Quarter: 2013Q1

REPORT INFORMATION
  Report Type: Spontaneous
  Country: US (occurrence: US)
  Receive Date: 20130219
  Receipt Date: 20130219
  Transmission Date: 20140127
  Serious: No
  Sender: FDA-Public Use
  Company Number: US-BRISTOL-MYERS SQUIBB COMPANY-16847741

PATIENT
  Age: 54 Year
  Sex: Female
  Weight: 68.03 kg

DRUGS (4)
  1. ABATACEPT SUBQ INJECTION 125MG/ML [Suspect]
     Indication: RHEUMATOID ARTHRITIS
     Route: 058
  2. TRAMADOL [Concomitant]
  3. CYCLOBENZAPRINE [Concomitant]
  4. CITRACAL + D [Concomitant]

REACTIONS (5)
  - Arthropathy [Unknown]
  - Constipation [Unknown]
  - Nasopharyngitis [Unknown]
  - Cold sweat [Unknown]
  - Productive cough [Unknown]
